FAERS Safety Report 7954347 (Version 2)
Quarter: 2015Q3

REPORT INFORMATION
  Report Type: Spontaneous
  Country: US (occurrence: US)
  Receive Date: 20110520
  Receipt Date: 20150911
  Transmission Date: 20151125
  Serious: Yes (Hospitalization)
  Sender: FDA-Public Use
  Company Number: US-ASTRAZENECA-2010SE39213

PATIENT
  Age: 62 Year
  Sex: Female
  Weight: 55.3 kg

DRUGS (8)
  1. AMOXICILLIN. [Concomitant]
     Active Substance: AMOXICILLIN
     Indication: EAR INFECTION
     Route: 048
  2. AMOXICILLIN. [Concomitant]
     Active Substance: AMOXICILLIN
     Indication: OROPHARYNGEAL PAIN
     Route: 048
  3. PERCOCET [Concomitant]
     Active Substance: ACETAMINOPHEN\OXYCODONE HYDROCHLORIDE
     Indication: BACK PAIN
     Dosage: 10/325 MG EVERY 6 HOURS AS NEEDED
     Dates: start: 201503
  4. TRAZODONE [Concomitant]
     Active Substance: TRAZODONE HYDROCHLORIDE
     Indication: SLEEP DISORDER
     Route: 048
  5. AMOXICILLIN. [Concomitant]
     Active Substance: AMOXICILLIN
     Indication: COUGH
     Route: 048
  6. CLORAZEPATE [Concomitant]
     Active Substance: CLORAZEPATE DIPOTASSIUM
     Indication: NERVOUS SYSTEM DISORDER
     Route: 048
  7. NEXIUM [Suspect]
     Active Substance: ESOMEPRAZOLE MAGNESIUM
     Indication: GASTROOESOPHAGEAL REFLUX DISEASE
     Route: 048
     Dates: start: 2011
  8. PROMETHAZINE [Concomitant]
     Active Substance: PROMETHAZINE\PROMETHAZINE HYDROCHLORIDE
     Indication: NAUSEA
     Route: 048

REACTIONS (9)
  - Oropharyngeal pain [Unknown]
  - Ear infection [Unknown]
  - Gastric ulcer [Unknown]
  - Back pain [Unknown]
  - Vomiting [Unknown]
  - Abdominal pain upper [Not Recovered/Not Resolved]
  - Intentional product misuse [Unknown]
  - Cough [Unknown]
  - Malaise [Unknown]

NARRATIVE: CASE EVENT DATE: 2011
